FAERS Safety Report 20688295 (Version 1)
Quarter: 2022Q2

REPORT INFORMATION
  Report Type: Spontaneous
  Country: NL (occurrence: NL)
  Receive Date: 20220408
  Receipt Date: 20220408
  Transmission Date: 20220721
  Serious: Yes (Other)
  Sender: FDA-Public Use
  Company Number: None

PATIENT
  Age: 88 Year
  Sex: Female
  Weight: 66.5 kg

DRUGS (11)
  1. CIPROFLOXACIN [Suspect]
     Active Substance: CIPROFLOXACIN
     Indication: Obstructive pancreatitis
     Dosage: 1000 MILLIGRAM DAILY; 2 A DAY 1 PIECE, FORM STRENGTH 500MG / BRAND NAME NOT SPECIFIED, DURATION- 10D
     Dates: start: 20220202, end: 20220212
  2. ASPIRIN [Concomitant]
     Active Substance: ASPIRIN
     Dosage: FORM STRENGTH 80MG / BRAND NAME NOT SPECIFIED THERAPY START DATE AND END DATE: ASKU
  3. METFORMIN [Concomitant]
     Active Substance: METFORMIN HYDROCHLORIDE
     Dosage: FORM STRENGTH 500MG / BRAND NAME NOT SPECIFIED, THERAPY START DATE AND END DATE: ASKU
  4. INSULINE ASPART [Concomitant]
     Dosage: INJECTION FLUID, 100 UNITS/ML, FORM STRENGTH 100E/ML / BRAND NAME NOT SPECIFIED, THERAPY START DATE
  5. INSULIN DEGLUDEC [Concomitant]
     Active Substance: INSULIN DEGLUDEC
     Dosage: INJECTION FLUID, 100 UNITS/ML, 100E/ML INJVLST / BRAND NAME NOT SPECIFIED THERAPY START DATE AND END
  6. AMLODIPINE [Concomitant]
     Active Substance: AMLODIPINE BESYLATE
     Dosage: FORM STRENGTH 5MG / BRAND NAME NOT SPECIFIED THERAPY START DATE AND END DATE: ASKU
  7. OMEPRAZOLE [Concomitant]
     Active Substance: OMEPRAZOLE
     Dosage: FORM STRENGTH 20MG / BRAND NAME NOT SPECIFIED THERAPY START DATE AND END DATE: ASKU
  8. METRONIDAZOLE [Concomitant]
     Active Substance: METRONIDAZOLE
     Dosage: FORM STRENGTH  500MG / BRAND NAME NOT SPECIFIED, THERAPY START DATE AND END DATE: ASKU
  9. LISINOPRIL [Concomitant]
     Active Substance: LISINOPRIL
     Dosage: FORM STRENGTH: 10MG / BRAND NAME NOT SPECIFIED THERAPY START DATE AND END DATE: ASKU
  10. METOCLOPRAMIDE [Concomitant]
     Active Substance: METOCLOPRAMIDE
     Dosage: FORM STRENGTH: 10MG / BRAND NAME NOT SPECIFIED, THERAPY START DATE AND END DATE: ASKU
  11. ATENOLOL [Concomitant]
     Active Substance: ATENOLOL
     Dosage: FORM STRENGTH:  25MG / BRAND NAME NOT SPECIFIED, THERAPY START DATE AND END DATE: ASKU

REACTIONS (1)
  - Tubulointerstitial nephritis [Recovered/Resolved]

NARRATIVE: CASE EVENT DATE: 20220212
